FAERS Safety Report 7170304-0 (Version None)
Quarter: 2010Q4

REPORT INFORMATION
  Report Type: 
  Country: None (occurrence: None)
  Receive Date: 20101217
  Receipt Date: 20101022
  Transmission Date: 20110411
  Serious: Yes (Other)
  Sender: FDA-Public Use
  Company Number: A0888310A

PATIENT
  Age: 54 Year
  Sex: Female

DRUGS (4)
  1. LAMICTAL [Suspect]
     Dosage: 100MG PER DAY
     Route: 048
     Dates: start: 20091001
  2. KEPPRA [Concomitant]
  3. CLONAZEPAM [Concomitant]
  4. VITAMIN TAB [Concomitant]

REACTIONS (7)
  - DRUG INEFFECTIVE [None]
  - DRY EYE [None]
  - EYELIDS PRURITUS [None]
  - GRAND MAL CONVULSION [None]
  - PRURITUS [None]
  - RASH [None]
  - RASH MACULAR [None]
